FAERS Safety Report 10064703 (Version 1)
Quarter: 2014Q1

REPORT INFORMATION
  Report Type: Spontaneous
  Country: US (occurrence: None)
  Receive Date: 20140328
  Receipt Date: 20140328
  Transmission Date: 20141002
  Serious: No
  Sender: FDA-Public Use
  Company Number: 1000053082

PATIENT
  Age: 61 Year
  Sex: Male

DRUGS (2)
  1. LINZESS [Suspect]
     Indication: IRRITABLE BOWEL SYNDROME
     Route: 048
     Dates: start: 20140108
  2. LIDOCAINE/HYDROCORTISONE [Suspect]
     Indication: HAEMORRHOIDS
     Route: 054
     Dates: start: 201401, end: 201401

REACTIONS (2)
  - Diarrhoea [None]
  - Haemorrhoidal haemorrhage [None]
